FAERS Safety Report 7450557-1 (Version None)
Quarter: 2011Q2

REPORT INFORMATION
  Report Type: 
  Country: None (occurrence: None)
  Receive Date: 20110502
  Receipt Date: 20110418
  Transmission Date: 20111010
  Serious: Yes (Hospitalization, Other)
  Sender: FDA-Public Use
  Company Number: JP-CELGENEUS-TAJPN-11-0073

PATIENT
  Sex: Female
  Weight: 63 kg

DRUGS (11)
  1. BROCIN [Concomitant]
     Route: 065
     Dates: start: 20110113
  2. APRICOT KERNAL WATER [Concomitant]
     Indication: COUGH
  3. ABRAXANE [Suspect]
     Indication: BREAST CANCER METASTATIC
     Route: 051
     Dates: start: 20110112, end: 20110112
  4. XYLOCAINE [Concomitant]
     Route: 065
     Dates: start: 20110120
  5. NARTOGRASTIM [Concomitant]
     Dosage: 200 MICROGRAM
     Route: 065
     Dates: start: 20110120
  6. BROCIN [Concomitant]
     Indication: COUGH
  7. CRAVIT [Concomitant]
     Dosage: 500 MILLIGRAM
     Route: 065
  8. LOXONIN [Concomitant]
     Route: 065
  9. APRICOT KERNAL WATER [Concomitant]
     Route: 065
     Dates: start: 20110113
  10. BIFLUID [Concomitant]
     Route: 065
     Dates: start: 20110120
  11. AZULENE [Concomitant]
     Route: 065
     Dates: start: 20110120

REACTIONS (7)
  - VOCAL CORD PARALYSIS [None]
  - BLOOD ALBUMIN DECREASED [None]
  - WHITE BLOOD CELL COUNT DECREASED [None]
  - NEUTROPHIL COUNT DECREASED [None]
  - PERIPHERAL SENSORY NEUROPATHY [None]
  - MUSCLE SPASMS [None]
  - DIARRHOEA [None]
